FAERS Safety Report 23189374 (Version 2)
Quarter: 2023Q4

REPORT INFORMATION
  Report Type: Spontaneous
  Country: ES (occurrence: ES)
  Receive Date: 20231116
  Receipt Date: 20231123
  Transmission Date: 20240110
  Serious: Yes (Hospitalization, Other)
  Sender: FDA-Public Use
  Company Number: ES-TEVA-2023-ES-2944518

PATIENT
  Age: 39 Year
  Sex: Female

DRUGS (9)
  1. EPIRUBICIN [Suspect]
     Active Substance: EPIRUBICIN
     Indication: Adrenocortical carcinoma
     Dosage: SCHEDULED TO BE ADMINISTERED FOR 6 CYCLES
     Route: 065
  2. KETOCONAZOLE [Suspect]
     Active Substance: KETOCONAZOLE
     Indication: Adrenocortical carcinoma
     Dosage: 200 MILLIGRAM DAILY; 100MG TWICE DAILY
     Route: 065
  3. CYCLOPHOSPHAMIDE [Suspect]
     Active Substance: CYCLOPHOSPHAMIDE
     Indication: Adrenocortical carcinoma
     Dosage: SCHEDULED TO BE ADMINISTERED FOR 6 CYCLES
     Route: 065
  4. CISPLATIN [Suspect]
     Active Substance: CISPLATIN
     Indication: Adrenocortical carcinoma
     Dosage: SCHEDULED TO BE ADMINISTERED FOR 6 CYCLES
     Route: 065
  5. MITOTANE [Suspect]
     Active Substance: MITOTANE
     Indication: Adrenocortical carcinoma
     Dosage: 2.5 GRAM DAILY; INITIAL DOSE, ONCE A DAY
     Route: 065
  6. MITOTANE [Suspect]
     Active Substance: MITOTANE
     Dosage: 4 GRAM DAILY; MAXIMUM DOSE, ONCE A DAY
     Route: 065
  7. ENALAPRIL [Concomitant]
     Active Substance: ENALAPRIL
     Indication: Secondary hypertension
     Dosage: 25 MILLIGRAM DAILY; ONCE A DAY
     Route: 065
  8. AMLODIPINE [Concomitant]
     Active Substance: AMLODIPINE BESYLATE
     Indication: Secondary hypertension
     Dosage: 10 MILLIGRAM DAILY; ONCE A DAY
     Route: 065
  9. HYDROCORTISONE [Concomitant]
     Active Substance: HYDROCORTISONE
     Indication: Adrenocortical carcinoma
     Dosage: 40-60 MG/DAILY
     Route: 065

REACTIONS (2)
  - Adrenal insufficiency [Unknown]
  - Drug ineffective [Unknown]
